FAERS Safety Report 12168375 (Version 1)
Quarter: 2016Q1

REPORT INFORMATION
  Report Type: Spontaneous
  Country: US (occurrence: None)
  Receive Date: 20160309
  Receipt Date: 20160309
  Transmission Date: 20160526
  Serious: No
  Sender: FDA-Public Use
  Company Number: None

PATIENT

DRUGS (1)
  1. TRIESENCE [Suspect]
     Active Substance: TRIAMCINOLONE ACETONIDE
     Indication: EYE DISORDER
     Route: 047

REACTIONS (3)
  - Product label confusion [None]
  - Product packaging issue [None]
  - Incorrect product storage [None]

NARRATIVE: CASE EVENT DATE: 20160304
